FAERS Safety Report 11156874 (Version 1)
Quarter: 2015Q2

REPORT INFORMATION
  Report Type: Spontaneous
  Country: HU (occurrence: US)
  Receive Date: 20150602
  Receipt Date: 20150602
  Transmission Date: 20150821
  Serious: Yes (Death)
  Sender: FDA-Public Use
  Company Number: HU-BAYER-2015-278232

PATIENT
  Age: 69 Year
  Sex: Male
  Weight: 62 kg

DRUGS (7)
  1. SODIUM CHLORIDE. [Concomitant]
     Active Substance: SODIUM CHLORIDE
     Indication: IMMUNISATION
     Dosage: 0.5 ML, QD (SECOND DOSE)
     Route: 030
     Dates: start: 20071207, end: 20071207
  2. METOPROLOL [Concomitant]
     Active Substance: METOPROLOL
  3. GLIBENCLAMIDE [Concomitant]
     Active Substance: GLYBURIDE
  4. BAYER GENUINE ASPIRIN [Suspect]
     Active Substance: ASPIRIN
  5. PENTOXIFYLLINE. [Concomitant]
     Active Substance: PENTOXIFYLLINE
  6. INFLUVAC [INFLUENZA VACCINE INACTIVATED] [Concomitant]
     Indication: IMMUNISATION
     Dosage: 0.5 ML, QD (SECOND DOSE)
     Route: 030
     Dates: start: 20071207, end: 20071207
  7. ATORVASTATIN [Concomitant]
     Active Substance: ATORVASTATIN

REACTIONS (3)
  - Peritonitis [Fatal]
  - Gastrointestinal haemorrhage [Fatal]
  - Duodenal ulcer perforation [Fatal]

NARRATIVE: CASE EVENT DATE: 20071225
